FAERS Safety Report 6671314-X (Version None)
Quarter: 2010Q2

REPORT INFORMATION
  Report Type: 
  Country: None (occurrence: None)
  Receive Date: 20100407
  Receipt Date: 20100402
  Transmission Date: 20101027
  Serious: Yes (Hospitalization)
  Sender: FDA-Public Use
  Company Number: US-ASTRAZENECA-2010SE14601

PATIENT
  Age: 75 Year
  Sex: Male

DRUGS (18)
  1. TOPROL-XL [Suspect]
     Route: 048
  2. DARBEPOETIN ALFA [Suspect]
     Indication: RENAL FAILURE CHRONIC
     Route: 058
     Dates: start: 20061206
  3. GLIMEPIRIDE [Suspect]
     Route: 048
  4. AVALIDE [Concomitant]
     Route: 048
  5. FENOFIBRATE [Concomitant]
     Route: 048
  6. PRAZOSIN [Concomitant]
     Route: 048
  7. ESOMEPRAZOLE [Concomitant]
  8. EZETIMIBE [Concomitant]
     Route: 048
  9. AMLODIPINE [Concomitant]
     Route: 048
  10. HYDRALAZINE HYDROCHLORIDE [Concomitant]
     Route: 048
  11. ASPIRIN [Concomitant]
     Route: 048
  12. MULTI-VITAMINS [Concomitant]
     Route: 048
  13. HYDROCHLOROTHIAZIDE [Concomitant]
     Route: 048
  14. FERROUS SULFATE TAB [Concomitant]
     Route: 048
  15. ASCORBIC ACID [Concomitant]
     Route: 048
  16. FUROSEMIDE [Concomitant]
     Route: 048
  17. PREGABALIN [Concomitant]
     Route: 048
  18. LOVAZA [Concomitant]
     Route: 048

REACTIONS (1)
  - TRANSIENT ISCHAEMIC ATTACK [None]
